FAERS Safety Report 4742440-7 (Version None)
Quarter: 2005Q3

REPORT INFORMATION
  Report Type: 
  Country: None (occurrence: None)
  Receive Date: 20050811
  Receipt Date: 20050729
  Transmission Date: 20060218
  Serious: Yes (Hospitalization)
  Sender: FDA-Public Use
  Company Number: 2005SE04411

PATIENT
  Age: 70 Year
  Sex: Female

DRUGS (4)
  1. BLOPRESS TABLETS 8 [Suspect]
     Indication: HYPERTENSION
     Route: 048
     Dates: start: 20021101, end: 20050601
  2. LIPITOR [Concomitant]
     Route: 048
  3. ARTIST [Concomitant]
     Route: 048
  4. CARDENALIN [Concomitant]
     Route: 048

REACTIONS (3)
  - DYSSTASIA [None]
  - HYPOGLYCAEMIA [None]
  - LOSS OF CONSCIOUSNESS [None]
